FAERS Safety Report 23192061 (Version 2)
Quarter: 2023Q4

REPORT INFORMATION
  Report Type: Spontaneous
  Country: PL (occurrence: PL)
  Receive Date: 20231116
  Receipt Date: 20231128
  Transmission Date: 20240110
  Serious: Yes (Other)
  Sender: FDA-Public Use
  Company Number: PL-MYLANLABS-2023M1111686

PATIENT
  Age: 11 Year
  Sex: Female

DRUGS (8)
  1. MEROPENEM [Suspect]
     Active Substance: MEROPENEM
     Dosage: UNK
  2. PIPERACILLIN SODIUM\TAZOBACTAM SODIUM [Suspect]
     Active Substance: PIPERACILLIN SODIUM\TAZOBACTAM SODIUM
     Dosage: UNK
  3. SULFAMETHOXAZOLE\TRIMETHOPRIM [Suspect]
     Active Substance: SULFAMETHOXAZOLE\TRIMETHOPRIM
     Indication: Urinary tract infection
     Dosage: UNK
  4. VANCOMYCIN [Suspect]
     Active Substance: VANCOMYCIN
     Dosage: UNK
     Route: 048
  5. CEFOTAXIME [Suspect]
     Active Substance: CEFOTAXIME SODIUM
     Indication: Urosepsis
     Dosage: UNK
  6. CEFOTAXIME [Suspect]
     Active Substance: CEFOTAXIME SODIUM
     Indication: Acute kidney injury
  7. CEFOTAXIME [Suspect]
     Active Substance: CEFOTAXIME SODIUM
     Indication: Chronic kidney disease
  8. OXYBUTYNIN [Suspect]
     Active Substance: OXYBUTYNIN
     Indication: Bladder disorder
     Dosage: UNK

REACTIONS (1)
  - Clostridium difficile colitis [Unknown]
